FAERS Safety Report 8300345-9 (Version None)
Quarter: 2012Q2

REPORT INFORMATION
  Report Type: 
  Country: None (occurrence: None)
  Receive Date: 20120420
  Receipt Date: 20120413
  Transmission Date: 20120825
  Serious: Yes (Other)
  Sender: FDA-Public Use
  Company Number: DE-PFIZER INC-2012092419

PATIENT
  Age: 26 Year
  Sex: Male
  Weight: 35 kg

DRUGS (3)
  1. RANITIDINE [Concomitant]
     Dosage: UNK
     Dates: start: 20120411
  2. DIFLUCAN [Suspect]
     Indication: OESOPHAGEAL CANDIDIASIS
     Dosage: UNK
     Dates: start: 20120207, end: 20120101
  3. DIFLUCAN [Suspect]
     Dosage: UNK
     Dates: start: 20120411

REACTIONS (4)
  - DRUG INEFFECTIVE [None]
  - RESTLESSNESS [None]
  - FUNGAL TEST POSITIVE [None]
  - FLATULENCE [None]
